FAERS Safety Report 4359037-3 (Version None)
Quarter: 2004Q2

REPORT INFORMATION
  Report Type: 
  Country: None (occurrence: None)
  Receive Date: 20040517
  Receipt Date: 20040504
  Transmission Date: 20050107
  Serious: Yes (Death)
  Sender: FDA-Public Use
  Company Number: KR-GLAXOSMITHKLINE-B0331806A

PATIENT
  Age: 74 Year
  Sex: Male

DRUGS (1)
  1. REQUIP [Suspect]
     Indication: ATROPHY
     Dates: start: 20031117, end: 20031209

REACTIONS (1)
  - DEATH [None]
